FAERS Safety Report 14479977 (Version 1)
Quarter: 2018Q1

REPORT INFORMATION
  Report Type: Report from Study
  Country: US (occurrence: BR)
  Receive Date: 20180202
  Receipt Date: 20180202
  Transmission Date: 20180509
  Serious: Yes (Hospitalization)
  Sender: FDA-Public Use
  Company Number: US-SUNOVION-2018SUN000338

PATIENT
  Sex: Female
  Weight: 93 kg

DRUGS (1)
  1. INDACATEROL AND GLYCOPYRROLATE [Suspect]
     Active Substance: GLYCOPYRROLATE\INDACATEROL MALEATE
     Indication: PULMONARY FUNCTION TEST DECREASED
     Dosage: 1 DF,(50 UG GLYCOPYRRONIUM BROMIDE 110 UG INDACATEROL, QD, REGIMEN#1
     Route: 055

REACTIONS (2)
  - Bacterial infection [Not Recovered/Not Resolved]
  - Product use in unapproved indication [Unknown]
